FAERS Safety Report 6762677-5 (Version None)
Quarter: 2010Q2

REPORT INFORMATION
  Report Type: 
  Country: None (occurrence: None)
  Receive Date: 20100609
  Receipt Date: 20100601
  Transmission Date: 20101027
  Serious: Yes (Hospitalization, Other)
  Sender: FDA-Public Use
  Company Number: A0859672A

PATIENT
  Age: 69 Year
  Sex: Female
  Weight: 92.7 kg

DRUGS (1)
  1. ARIXTRA [Suspect]
     Indication: DEEP VEIN THROMBOSIS
     Dosage: 7.5MG PER DAY
     Route: 058
     Dates: start: 20091130

REACTIONS (7)
  - ANTICOAGULATION DRUG LEVEL ABOVE THERAPEUTIC [None]
  - ANTICOAGULATION DRUG LEVEL BELOW THERAPEUTIC [None]
  - DEEP VEIN THROMBOSIS [None]
  - DRUG INEFFECTIVE [None]
  - THROMBOSIS [None]
  - UNDERDOSE [None]
  - WEIGHT INCREASED [None]
